FAERS Safety Report 5367317-8 (Version None)
Quarter: 2007Q2

REPORT INFORMATION
  Report Type: 
  Country: None (occurrence: None)
  Receive Date: 20070622
  Receipt Date: 20060531
  Transmission Date: 20071010
  Serious: No
  Sender: FDA-Public Use
  Company Number: US-ASTRAZENECA-2006UW10524

PATIENT
  Age: 70 Year
  Sex: Female
  Weight: 45.4 kg

DRUGS (3)
  1. PULMICORT [Suspect]
     Indication: ASTHMA
     Route: 055
     Dates: start: 20060522
  2. PULMICORT [Suspect]
     Indication: CHRONIC OBSTRUCTIVE PULMONARY DISEASE
     Route: 055
     Dates: start: 20060522
  3. ALBUTEROL [Concomitant]

REACTIONS (4)
  - DYSPHONIA [None]
  - EYE DISCHARGE [None]
  - HEADACHE [None]
  - NERVOUSNESS [None]
